FAERS Safety Report 23618238 (Version 1)
Quarter: 2024Q1

REPORT INFORMATION
  Report Type: Report from Study
  Country: US (occurrence: US)
  Receive Date: 20240311
  Receipt Date: 20240311
  Transmission Date: 20240410
  Serious: Yes (Hospitalization)
  Sender: FDA-Public Use
  Company Number: US-GILEAD-2024-0664806

PATIENT
  Age: 32 Year
  Sex: Female

DRUGS (1)
  1. AZTREONAM LYSINE [Suspect]
     Active Substance: AZTREONAM LYSINE
     Indication: Cystic fibrosis gastrointestinal disease
     Dosage: NEBULIZE 1 VIAL THREE TIMES DAILY FOR 28 DAYS ON / 28 DAYS OFF
     Route: 055
     Dates: start: 20231019

REACTIONS (1)
  - Surgery [Unknown]
